FAERS Safety Report 21311816 (Version 1)
Quarter: 2022Q3

REPORT INFORMATION
  Report Type: Spontaneous
  Country: US (occurrence: None)
  Receive Date: 20220909
  Receipt Date: 20220909
  Transmission Date: 20221027
  Serious: No
  Sender: FDA-Public Use
  Company Number: US-ARIS GLOBAL-202203-0495

PATIENT
  Sex: Female

DRUGS (12)
  1. OXERVATE [Suspect]
     Active Substance: CENEGERMIN-BKBJ
     Indication: Neurotrophic keratopathy
     Route: 047
     Dates: start: 20220314
  2. ADVIL SINUS CONGESTION-PAIN [Concomitant]
  3. ADVIL [Concomitant]
     Active Substance: IBUPROFEN
  4. TUMS 200 [Concomitant]
     Dosage: (500) MG
  5. FISH OIL [Concomitant]
     Active Substance: FISH OIL
  6. CIPROFLOXACIN HYDROCHLORIDE [Concomitant]
     Active Substance: CIPROFLOXACIN HYDROCHLORIDE
  7. LORATADINE-D [Concomitant]
     Dosage: 10 MG--240 MG EXTENDED RELEASE 24 HOURS
  8. VITAMIN D3-ALOE [Concomitant]
     Dosage: 120 MG-1000
  9. MINERALS\VITAMINS [Concomitant]
     Active Substance: MINERALS\VITAMINS
     Dosage: 4-300-250
  10. LOVASTATIN [Concomitant]
     Active Substance: LOVASTATIN
  11. HYDROCHLOROTHIAZIDE [Concomitant]
     Active Substance: HYDROCHLOROTHIAZIDE
  12. IRBESARTAN [Concomitant]
     Active Substance: IRBESARTAN

REACTIONS (3)
  - Eye pain [Unknown]
  - Dry eye [Unknown]
  - Eye swelling [Unknown]
